FAERS Safety Report 23603581 (Version 1)
Quarter: 2024Q1

REPORT INFORMATION
  Report Type: Spontaneous
  Country: FR (occurrence: FR)
  Receive Date: 20240307
  Receipt Date: 20240307
  Transmission Date: 20240409
  Serious: Yes (Hospitalization, Other)
  Sender: FDA-Public Use
  Company Number: None

PATIENT
  Age: 71 Year
  Sex: Male
  Weight: 52 kg

DRUGS (23)
  1. VECTIBIX [Suspect]
     Active Substance: PANITUMUMAB
     Indication: Adenocarcinoma gastric
     Dosage: C6 : 250 MG OVER 1 HOUR
     Route: 040
     Dates: start: 20240219, end: 20240219
  2. VECTIBIX [Suspect]
     Active Substance: PANITUMUMAB
     Dosage: C2 : 335 MG OVER 1 HOUR
     Route: 040
     Dates: start: 20231004, end: 20231004
  3. VECTIBIX [Suspect]
     Active Substance: PANITUMUMAB
     Dosage: C1 : 335 MG OVER 1 HOUR
     Route: 040
     Dates: start: 20230920, end: 20230920
  4. VECTIBIX [Suspect]
     Active Substance: PANITUMUMAB
     Dosage: C4 : 320 MG OVER 1 HOUR
     Route: 040
     Dates: start: 20240111, end: 20240111
  5. VECTIBIX [Suspect]
     Active Substance: PANITUMUMAB
     Dosage: C5 : 320 MG OVER 1 HOUR
     Route: 040
     Dates: start: 20240125, end: 20240125
  6. VECTIBIX [Suspect]
     Active Substance: PANITUMUMAB
     Dosage: C3 : 320 MG OVER 1 HOUR
     Route: 040
     Dates: start: 20231018, end: 20231018
  7. OXALIPLATIN [Suspect]
     Active Substance: OXALIPLATIN
     Indication: Adenocarcinoma gastric
     Dosage: C1 : 110 MG OVER 2 HOUR
     Route: 040
     Dates: start: 20230816, end: 20230816
  8. OXALIPLATIN [Suspect]
     Active Substance: OXALIPLATIN
     Dosage: C3 : 106 MG OVER 2 HOUR
     Route: 040
     Dates: start: 20231018, end: 20231018
  9. OXALIPLATIN [Suspect]
     Active Substance: OXALIPLATIN
     Dosage: C2 : 109 MG OVER 2 HOUR
     Route: 040
     Dates: start: 20231004, end: 20231004
  10. OXALIPLATIN [Suspect]
     Active Substance: OXALIPLATIN
     Dosage: C5 : 106 MG OVER 2 HOUR
     Route: 040
     Dates: start: 20240125, end: 20240125
  11. OXALIPLATIN [Suspect]
     Active Substance: OXALIPLATIN
     Dosage: C1 : 109 MG OVER 2 HOUR
     Route: 040
     Dates: start: 20230920, end: 20230920
  12. OXALIPLATIN [Suspect]
     Active Substance: OXALIPLATIN
     Dosage: C2 : 110 MG OVER 2 HOUR
     Route: 040
     Dates: start: 20230906, end: 20230906
  13. OXALIPLATIN [Suspect]
     Active Substance: OXALIPLATIN
     Dosage: C6 : 105 MG OVER 2 HOUR
     Route: 040
     Dates: start: 20240219, end: 20240219
  14. OXALIPLATIN [Suspect]
     Active Substance: OXALIPLATIN
     Dosage: C4 : 106 MG OVER 2 HOUR
     Route: 040
     Dates: start: 20240111, end: 20240111
  15. FLUOROURACIL [Suspect]
     Active Substance: FLUOROURACIL
     Indication: Adenocarcinoma gastric
     Dosage: C4 : 2600 MG OVER 46 HOUR
     Route: 040
     Dates: start: 20240111, end: 20240111
  16. FLUOROURACIL [Suspect]
     Active Substance: FLUOROURACIL
     Dosage: C2 : 2700 MG OVER 46 HOUR
     Route: 040
     Dates: start: 20231004, end: 20231004
  17. FLUOROURACIL [Suspect]
     Active Substance: FLUOROURACIL
     Dosage: C1 : 650 MG IN 10MINUTES THEN 3900 MG IN 46 HOURS
     Route: 040
     Dates: start: 20230816, end: 20230816
  18. FLUOROURACIL [Suspect]
     Active Substance: FLUOROURACIL
     Dosage: C6 : 2230 MG OVER 46 HOURS
     Route: 040
     Dates: start: 20240219, end: 20240219
  19. FLUOROURACIL [Suspect]
     Active Substance: FLUOROURACIL
     Dosage: C1 : 2700 MG OVER 46 HOURS
     Route: 040
     Dates: start: 20230920, end: 20230920
  20. FLUOROURACIL [Suspect]
     Active Substance: FLUOROURACIL
     Dosage: C5 : 2250 MG OVER 46 HOURS
     Route: 040
     Dates: start: 20240125, end: 20240125
  21. FLUOROURACIL [Suspect]
     Active Substance: FLUOROURACIL
     Dosage: C2 : 2700 MG OVER 46 HOURS
     Route: 040
     Dates: start: 20230906, end: 20230906
  22. FLUOROURACIL [Suspect]
     Active Substance: FLUOROURACIL
     Dosage: C3 : 2600 MG OVER 46 HOURS
     Route: 040
     Dates: start: 20231018, end: 20231018
  23. LENOGRASTIM [Suspect]
     Active Substance: LENOGRASTIM
     Indication: Neutropenia
     Dosage: 34 MUI/DAY
     Route: 058
     Dates: start: 20240216, end: 20240217

REACTIONS (3)
  - Acute kidney injury [Recovered/Resolved]
  - Eosinophilia [Recovered/Resolved]
  - Rash maculo-papular [Recovering/Resolving]

NARRATIVE: CASE EVENT DATE: 20240219
